FAERS Safety Report 25779559 (Version 1)
Quarter: 2025Q3

REPORT INFORMATION
  Report Type: Spontaneous
  Country: CN (occurrence: CN)
  Receive Date: 20250909
  Receipt Date: 20250909
  Transmission Date: 20251020
  Serious: Yes (Hospitalization)
  Sender: FRESENIUS KABI
  Company Number: CN-FreseniusKabi-FK202512247

PATIENT
  Age: 57 Year
  Sex: Female
  Weight: 55 kg

DRUGS (8)
  1. INTRALIPID [Suspect]
     Active Substance: EGG PHOSPHOLIPIDS\GLYCERIN\SOYBEAN OIL
     Indication: Rectal cancer
     Dosage: FOA: INJECTION
     Route: 041
     Dates: start: 20250725, end: 20250801
  2. DEXTROSE [Suspect]
     Active Substance: DEXTROSE MONOHYDRATE
     Indication: Rectal cancer
     Dosage: FOA: INJECTION
     Route: 041
     Dates: start: 20250725, end: 20250801
  3. VITAMINS [Suspect]
     Active Substance: VITAMINS
     Indication: Rectal cancer
     Dosage: FOA: INJECTION
     Route: 041
     Dates: start: 20250725, end: 20250801
  4. AMINO ACIDS, SOURCE UNSPECIFIED [Suspect]
     Active Substance: AMINO ACIDS, SOURCE UNSPECIFIED
     Indication: Rectal cancer
     Dosage: FOA: INJECTION
     Route: 041
     Dates: start: 20250725, end: 20250801
  5. ERGOCALCIFEROL\PHYTONADIONE\RETINOL\TOCOPHEROL [Suspect]
     Active Substance: ERGOCALCIFEROL\PHYTONADIONE\RETINOL\TOCOPHEROL
     Indication: Rectal cancer
     Dosage: FOA: INJECTION
     Route: 041
     Dates: start: 20250725, end: 20250801
  6. GLYCERIN\LECITHIN\MEDIUM-CHAIN TRIGLYCERIDES\SOYBEAN OIL [Suspect]
     Active Substance: GLYCERIN\LECITHIN\MEDIUM-CHAIN TRIGLYCERIDES\SOYBEAN OIL
     Indication: Rectal cancer
     Dosage: FOA: INJECTION
     Route: 041
     Dates: start: 20250725, end: 20250801
  7. POTASSIUM PHOSPHATE, DIBASIC\POTASSIUM PHOSPHATE, MONOBASIC [Suspect]
     Active Substance: POTASSIUM PHOSPHATE, DIBASIC\POTASSIUM PHOSPHATE, MONOBASIC
     Indication: Rectal cancer
     Dosage: FOA: INJECTION
     Route: 041
     Dates: start: 20250725, end: 20250801
  8. DEXTROSE [Suspect]
     Active Substance: DEXTROSE MONOHYDRATE
     Indication: Rectal cancer
     Dosage: FOA: INJECTION
     Route: 041
     Dates: start: 20250725, end: 20250801

REACTIONS (1)
  - Liver injury [Recovering/Resolving]

NARRATIVE: CASE EVENT DATE: 20250801
